FAERS Safety Report 12803276 (Version 1)
Quarter: 2016Q4

REPORT INFORMATION
  Report Type: Spontaneous
  Country: HR (occurrence: HR)
  Receive Date: 20161003
  Receipt Date: 20161003
  Transmission Date: 20170207
  Serious: Yes (Hospitalization, Other)
  Sender: FDA-Public Use
  Company Number: PHHY2016HR134895

PATIENT
  Age: 53 Year
  Sex: Male

DRUGS (12)
  1. ZOLPIDEM [Concomitant]
     Active Substance: ZOLPIDEM\ZOLPIDEM TARTRATE
     Indication: POST-TRAUMATIC STRESS DISORDER
  2. QUETIAPINE. [Suspect]
     Active Substance: QUETIAPINE
     Indication: MAJOR DEPRESSION
     Dosage: 800 MG, QD
     Route: 065
  3. QUETIAPINE. [Interacting]
     Active Substance: QUETIAPINE
     Indication: POST-TRAUMATIC STRESS DISORDER
     Dosage: 400 MG, QD
     Route: 065
  4. QUETIAPINE. [Interacting]
     Active Substance: QUETIAPINE
     Dosage: 100 MG, QD
     Route: 065
  5. BIPERIDEN [Concomitant]
     Active Substance: BIPERIDEN
     Indication: POST-TRAUMATIC STRESS DISORDER
  6. VALPROATE [Concomitant]
     Active Substance: VALPROIC ACID
     Indication: MAJOR DEPRESSION
     Dosage: 1500 MG, QD
     Route: 065
  7. VALPROATE [Concomitant]
     Active Substance: VALPROIC ACID
     Indication: POST-TRAUMATIC STRESS DISORDER
  8. DIAZEPAM. [Concomitant]
     Active Substance: DIAZEPAM
     Indication: MAJOR DEPRESSION
     Dosage: 30 MG, QD
     Route: 065
  9. ZOLPIDEM [Concomitant]
     Active Substance: ZOLPIDEM\ZOLPIDEM TARTRATE
     Indication: MAJOR DEPRESSION
     Dosage: 10 MG, QD
     Route: 065
  10. ESCITALOPRAM [Interacting]
     Active Substance: ESCITALOPRAM OXALATE
     Indication: POST-TRAUMATIC STRESS DISORDER
     Dosage: 20 MG, QD
     Route: 065
  11. BIPERIDEN [Concomitant]
     Active Substance: BIPERIDEN
     Indication: MAJOR DEPRESSION
     Dosage: 1 MG, QD
     Route: 065
  12. DIAZEPAM. [Concomitant]
     Active Substance: DIAZEPAM
     Indication: POST-TRAUMATIC STRESS DISORDER

REACTIONS (3)
  - Electrocardiogram abnormal [Unknown]
  - Drug interaction [Unknown]
  - Bundle branch block right [Unknown]
